FAERS Safety Report 10071414 (Version 1)
Quarter: 2014Q2

REPORT INFORMATION
  Report Type: Spontaneous
  Country: US (occurrence: US)
  Receive Date: 20140410
  Receipt Date: 20140410
  Transmission Date: 20141212
  Serious: Yes (Hospitalization, Other)
  Sender: FDA-Public Use
  Company Number: US-ACTAVIS-2014-06842

PATIENT
  Age: 45 Year
  Sex: Female

DRUGS (2)
  1. IRINOTECAN HYDROCHLORIDE (ATLLC) [Suspect]
     Indication: ASTROCYTOMA
     Dosage: UNKNOWN
     Route: 065
  2. BEVACIZUMAB [Suspect]
     Indication: ASTROCYTOMA
     Dosage: UNKNOWN
     Route: 065

REACTIONS (3)
  - Intracranial aneurysm [Recovered/Resolved]
  - Subarachnoid haemorrhage [Recovered/Resolved]
  - Hydrocephalus [Unknown]
